FAERS Safety Report 18024184 (Version 1)
Quarter: 2020Q3

REPORT INFORMATION
  Report Type: Spontaneous
  Country: US (occurrence: US)
  Receive Date: 20200715
  Receipt Date: 20200715
  Transmission Date: 20201103
  Serious: No
  Sender: FDA-Public Use
  Company Number: US-GLENMARK PHARMACEUTICALS-2019GMK042731

PATIENT

DRUGS (2)
  1. MOMETASONE FUROATE OINTMENT USP, 0.1% [Suspect]
     Active Substance: MOMETASONE FUROATE
     Indication: DERMATITIS CONTACT
     Dosage: UNK, TID
     Route: 061
     Dates: start: 20190814, end: 20190815
  2. ELTA [Concomitant]
     Indication: DRY SKIN PROPHYLAXIS
     Dosage: UNK (UV SHIELD BROAD?SPECTRUM SPF 45)
     Route: 065
     Dates: start: 20190814

REACTIONS (3)
  - Product administered at inappropriate site [Unknown]
  - Therapeutic response decreased [Unknown]
  - Product use issue [Unknown]

NARRATIVE: CASE EVENT DATE: 20190814
